FAERS Safety Report 4380900-1 (Version None)
Quarter: 2004Q2

REPORT INFORMATION
  Report Type: 
  Country: None (occurrence: None)
  Receive Date: 20040616
  Receipt Date: 20040603
  Transmission Date: 20050107
  Serious: Yes (Other)
  Sender: FDA-Public Use
  Company Number: FR-JNJFOC-20040601871

PATIENT
  Sex: 0

DRUGS (4)
  1. ABCIXIMAB (ABCIXIMAB) INJECTION [Suspect]
     Indication: ACUTE MYOCARDIAL INFARCTION
     Dosage: 0.25 MG/KG, 1 IN 1 TOTAL, INTRAVENOUS; 0.125 UG/KG/MIN. 1 IN 12  HOUR, INTRAVENOUS
     Route: 042
  2. UNFRACTIONATED HEPARIN (HEPARIN) [Concomitant]
  3. ASPIRIN [Concomitant]
  4. CLOPIDOGREL (CLOPIDOGREL) [Concomitant]

REACTIONS (2)
  - MYOCARDIAL INFARCTION [None]
  - VENTRICULAR DYSFUNCTION [None]
